FAERS Safety Report 23382837 (Version 1)
Quarter: 2024Q1

REPORT INFORMATION
  Report Type: Spontaneous
  Country: US (occurrence: US)
  Receive Date: 20240109
  Receipt Date: 20240109
  Transmission Date: 20240409
  Serious: No
  Sender: FDA-Public Use
  Company Number: US-OCULAR THERAPEUTIX-2023OCX00012

PATIENT
  Age: 68 Year
  Sex: Female

DRUGS (9)
  1. DEXTENZA [Suspect]
     Active Substance: DEXAMETHASONE
     Indication: Procedural pain
     Dosage: IMPLANTED LLL (LEFT LOWER LID)
     Dates: start: 20230214
  2. DEXTENZA [Suspect]
     Active Substance: DEXAMETHASONE
     Indication: Post procedural inflammation
     Dosage: IMPLANTED RLL (RIGHT LOWER LID)
     Dates: start: 20230221
  3. TOBRAMYCIN [Concomitant]
     Active Substance: TOBRAMYCIN
     Dosage: 4X/DAY FOR ONE WEEK
     Dates: start: 20230214, end: 2023
  4. PROLENSA [Concomitant]
     Active Substance: BROMFENAC SODIUM
     Dosage: UNK, 1X/DAY FOR ONE MONTH STARTING DAY OF SURGERY
     Dates: start: 20230214, end: 2023
  5. ACYCLOVIR [Concomitant]
     Active Substance: ACYCLOVIR
     Dosage: 400 MG, 1X/DAY
  6. HYDROCHLOROTHIAZIDE [Concomitant]
     Active Substance: HYDROCHLOROTHIAZIDE
     Dosage: 25 MG, 1X/DAY
  7. OMEPRAZOLE [Concomitant]
     Active Substance: OMEPRAZOLE
     Dosage: 40 MG, 1X/DAY
  8. ROSUVASTATIN [Concomitant]
     Active Substance: ROSUVASTATIN
     Dosage: 20 MG, 1X/DAY
  9. ESTRADIOL [Concomitant]
     Active Substance: ESTRADIOL
     Dosage: 0.025MG/24 HR PATCH, 2X/WEEK
     Route: 062

REACTIONS (1)
  - Lacrimation increased [Not Recovered/Not Resolved]

NARRATIVE: CASE EVENT DATE: 20230214
